FAERS Safety Report 17230776 (Version 2)
Quarter: 2020Q1

REPORT INFORMATION
  Report Type: Spontaneous
  Country: US (occurrence: US)
  Receive Date: 20200103
  Receipt Date: 20200319
  Transmission Date: 20200409
  Serious: Yes (Other)
  Sender: FDA-Public Use
  Company Number: US-VIFOR (INTERNATIONAL) INC.-VIT-2020-00002

PATIENT
  Sex: Male

DRUGS (3)
  1. CARVEDILOL. [Concomitant]
     Active Substance: CARVEDILOL
  2. ATORVASTATIN [Concomitant]
     Active Substance: ATORVASTATIN
  3. VELTASSA [Suspect]
     Active Substance: PATIROMER
     Indication: PRODUCT USED FOR UNKNOWN INDICATION
     Route: 048
     Dates: start: 201911

REACTIONS (2)
  - Constipation [Not Recovered/Not Resolved]
  - Haematochezia [Recovering/Resolving]

NARRATIVE: CASE EVENT DATE: 201911
